FAERS Safety Report 4783035-9 (Version None)
Quarter: 2005Q3

REPORT INFORMATION
  Report Type: 
  Country: None (occurrence: None)
  Receive Date: 20050914
  Receipt Date: 20050518
  Transmission Date: 20060218
  Serious: Yes (Other)
  Sender: FDA-Public Use
  Company Number: 163-20785-05050276

PATIENT
  Age: 64 Year
  Sex: Female
  Weight: 119 kg

DRUGS (4)
  1. THALOMID [Suspect]
     Indication: NON-SMALL CELL LUNG CANCER
     Dosage: 100 MG, DAILY, ORAL
     Route: 048
     Dates: start: 20040806, end: 20050203
  2. CARBOPLATIN [Suspect]
     Indication: NON-SMALL CELL LUNG CANCER
     Dates: start: 20040806, end: 20041029
  3. PACLITAXEL [Suspect]
     Indication: NON-SMALL CELL LUNG CANCER
     Dates: start: 20040806, end: 20041029
  4. RADIATION THERAPY (UNKNOWN) [Suspect]
     Indication: NON-SMALL CELL LUNG CANCER
     Dates: start: 20040806

REACTIONS (1)
  - DYSPHAGIA [None]
